FAERS Safety Report 4380982-7 (Version None)
Quarter: 2004Q2

REPORT INFORMATION
  Report Type: 
  Country: None (occurrence: None)
  Receive Date: 20040614
  Receipt Date: 20040602
  Transmission Date: 20050107
  Serious: Yes (Hospitalization)
  Sender: FDA-Public Use
  Company Number: GBWYE803604JUN04

PATIENT
  Sex: Male

DRUGS (4)
  1. SIROLIMUS (SIROLIMUS, UNSPEC, 0) [Suspect]
     Indication: IMMUNOSUPPRESSANT DRUG THERAPY
     Dosage: UNKNOWN ONCE DAILY DOSE; ORAL
     Route: 048
     Dates: start: 20030330
  2. PREDNISONE [Concomitant]
  3. ZENAPAX [Concomitant]
  4. CELLCEPT [Concomitant]

REACTIONS (2)
  - ARTERIAL DISORDER [None]
  - BLOOD CREATININE ABNORMAL [None]
